FAERS Safety Report 6357478-6 (Version None)
Quarter: 2009Q3

REPORT INFORMATION
  Report Type: 
  Country: None (occurrence: None)
  Receive Date: 20090916
  Receipt Date: 20090909
  Transmission Date: 20100115
  Serious: Yes (Death)
  Sender: FDA-Public Use
  Company Number: US-ROCHE-577840

PATIENT
  Age: 4 Month
  Sex: Female

DRUGS (3)
  1. ROCEPHIN [Suspect]
     Indication: DRUG USE FOR UNKNOWN INDICATION
     Route: 065
     Dates: start: 20080511, end: 20080511
  2. TYLENOL (CAPLET) [Concomitant]
     Route: 065
     Dates: start: 20080511, end: 20080511
  3. PEDIALYTE [Concomitant]
     Indication: FLUID REPLACEMENT
     Route: 065
     Dates: start: 20080511, end: 20080511

REACTIONS (1)
  - DEATH [None]
